FAERS Safety Report 16725224 (Version 1)
Quarter: 2019Q3

REPORT INFORMATION
  Report Type: Report from Study
  Country: None (occurrence: US)
  Receive Date: 20190821
  Receipt Date: 20190821
  Transmission Date: 20191005
  Serious: Yes (Hospitalization)
  Sender: FDA-Public Use
  Company Number: US-ABBVIE-19K-163-2891061-00

PATIENT
  Age: 27 Year
  Sex: Female

DRUGS (1)
  1. HUMIRA [Suspect]
     Active Substance: ADALIMUMAB
     Indication: HIDRADENITIS
     Dosage: CITRATE FREE
     Route: 058
     Dates: start: 20190725, end: 20190808

REACTIONS (4)
  - Tooth loss [Not Recovered/Not Resolved]
  - Hypophagia [Unknown]
  - Gun shot wound [Recovering/Resolving]
  - Fluid intake reduced [Unknown]

NARRATIVE: CASE EVENT DATE: 201908
